FAERS Safety Report 17114497 (Version 2)
Quarter: 2019Q4

REPORT INFORMATION
  Report Type: Spontaneous
  Country: FR (occurrence: FR)
  Receive Date: 20191205
  Receipt Date: 20191224
  Transmission Date: 20200122
  Serious: Yes (Other)
  Sender: FDA-Public Use
  Company Number: PHHY2019FR011730

PATIENT
  Sex: Female

DRUGS (4)
  1. VIVELLE-DOT [Suspect]
     Active Substance: ESTRADIOL
     Indication: MANAGEMENT OF REPRODUCTION
     Dosage: 2 DF (2 PATCHES OF 37.5 UG, EVERY 3 DAYS)
     Route: 062
     Dates: start: 20181029
  2. PROGESTERONE. [Concomitant]
     Active Substance: PROGESTERONE
     Indication: ASSISTED REPRODUCTIVE TECHNOLOGY
     Dosage: 400 MG, BID
     Route: 067
     Dates: start: 20181029
  3. FOLIC ACID. [Concomitant]
     Active Substance: FOLIC ACID
     Indication: ASSISTED REPRODUCTIVE TECHNOLOGY
     Dosage: 0.4 MG, QD
     Route: 048
     Dates: start: 20181029
  4. DECAPEPTYL [Concomitant]
     Indication: ASSISTED REPRODUCTIVE TECHNOLOGY
     Dosage: 3 MG, UNK
     Route: 030
     Dates: start: 20181029

REACTIONS (5)
  - Fatigue [Unknown]
  - Abortion spontaneous [Unknown]
  - Maternal exposure during pregnancy [Unknown]
  - Nausea [Unknown]
  - Product use in unapproved indication [Unknown]
